FAERS Safety Report 4568125-8 (Version None)
Quarter: 2005Q1

REPORT INFORMATION
  Report Type: 
  Country: None (occurrence: None)
  Receive Date: 20050202
  Receipt Date: 20050126
  Transmission Date: 20050727
  Serious: Yes (Hospitalization)
  Sender: FDA-Public Use
  Company Number: FR-ROCHE-393653

PATIENT
  Age: 55 Year
  Sex: Male

DRUGS (8)
  1. CELLCEPT [Suspect]
     Indication: DRUG USE FOR UNKNOWN INDICATION
     Route: 048
     Dates: start: 20040705
  2. LANSOPRAZOLE [Suspect]
     Indication: DRUG USE FOR UNKNOWN INDICATION
     Route: 048
     Dates: start: 20040205
  3. CORDARONE [Suspect]
     Indication: DRUG USE FOR UNKNOWN INDICATION
     Route: 048
     Dates: start: 20040605
  4. PREVISCAN [Concomitant]
     Dates: start: 20040615
  5. DIFFU K [Concomitant]
  6. MOVICOL [Concomitant]
  7. SOLUPRED [Concomitant]
  8. ENDOXAN [Concomitant]
     Dates: start: 20031015

REACTIONS (1)
  - GYNAECOMASTIA [None]
